FAERS Safety Report 5015051-6 (Version None)
Quarter: 2006Q2

REPORT INFORMATION
  Report Type: 
  Country: None (occurrence: None)
  Receive Date: 20060426
  Receipt Date: 20060221
  Transmission Date: 20061013
  Serious: No
  Sender: FDA-Public Use
  Company Number: 217822

PATIENT
  Age: 19 Year
  Sex: Female

DRUGS (4)
  1. XOLAIR [Suspect]
     Indication: ASTHMA
     Dosage: 1/MONTH
     Dates: start: 20050101
  2. PULMICORT [Concomitant]
  3. XOPENEX [Concomitant]
  4. CLOTRIMAZOLE [Concomitant]

REACTIONS (3)
  - DIZZINESS [None]
  - HYPOAESTHESIA [None]
  - MICTURITION DISORDER [None]
